FAERS Safety Report 19177332 (Version 2)
Quarter: 2021Q2

REPORT INFORMATION
  Report Type: Spontaneous
  Country: RU (occurrence: RU)
  Receive Date: 20210425
  Receipt Date: 20210625
  Transmission Date: 20210717
  Serious: Yes (Death, Other)
  Sender: FDA-Public Use
  Company Number: RU-AMGEN-RUSSP2021061509

PATIENT
  Age: 4 Month
  Sex: Male

DRUGS (5)
  1. TREOSULFAN [Concomitant]
     Active Substance: TREOSULFAN
     Dosage: UNK
  2. THIOTEPA. [Concomitant]
     Active Substance: THIOTEPA
     Dosage: UNK
  3. BLINATUMOMAB [Suspect]
     Active Substance: BLINATUMOMAB
     Indication: B PRECURSOR TYPE ACUTE LEUKAEMIA
     Dosage: UNK
     Route: 065
  4. BORTEZOMIB. [Concomitant]
     Active Substance: BORTEZOMIB
     Dosage: UNK
  5. FLUDARABINE [Concomitant]
     Active Substance: FLUDARABINE PHOSPHATE
     Dosage: UNK

REACTIONS (2)
  - Cytokine release syndrome [Unknown]
  - B precursor type acute leukaemia [Fatal]
